FAERS Safety Report 10803675 (Version 1)
Quarter: 2015Q1

REPORT INFORMATION
  Report Type: Spontaneous
  Country: JP (occurrence: JP)
  Receive Date: 20150217
  Receipt Date: 20150217
  Transmission Date: 20150721
  Serious: Yes (Hospitalization, Other)
  Sender: FDA-Public Use
  Company Number: JP-GLAXOSMITHKLINE-JP2015GSK018147

PATIENT
  Age: 77 Year
  Sex: Male

DRUGS (1)
  1. GLIMEPIRIDE. [Suspect]
     Active Substance: GLIMEPIRIDE
     Indication: PRODUCT USED FOR UNKNOWN INDICATION
     Route: 048

REACTIONS (8)
  - Loss of consciousness [Unknown]
  - Accidental exposure to product [Unknown]
  - Blood insulin increased [Unknown]
  - Hypoglycaemia [Recovered/Resolved]
  - Musculoskeletal stiffness [Unknown]
  - Moaning [Unknown]
  - Altered state of consciousness [Unknown]
  - Seizure [Unknown]
